FAERS Safety Report 14572648 (Version 4)
Quarter: 2018Q3

REPORT INFORMATION
  Report Type: Report from Study
  Country: US (occurrence: US)
  Receive Date: 20180226
  Receipt Date: 20180924
  Transmission Date: 20181010
  Serious: Yes (Other)
  Sender: FDA-Public Use
  Company Number: US-REGENERON PHARMACEUTICALS, INC.-2018-15445

PATIENT

DRUGS (4)
  1. EYLEA [Suspect]
     Active Substance: AFLIBERCEPT
     Indication: RETINAL VEIN OCCLUSION
     Dosage: 2 MG/ 0.05 ML, Q4W, OS
     Route: 031
     Dates: start: 20160416
  2. EYLEA [Suspect]
     Active Substance: AFLIBERCEPT
     Dosage: 2 MG/ 0.05 ML, Q4W, OS
     Route: 031
     Dates: start: 20180105, end: 20180105
  3. EYLEA [Suspect]
     Active Substance: AFLIBERCEPT
     Dosage: 2 MG/ 0.05 ML, Q7W, OS
     Route: 031
     Dates: start: 20180302, end: 20180302
  4. ATORVASTATIN [Concomitant]
     Active Substance: ATORVASTATIN
     Indication: PRODUCT USED FOR UNKNOWN INDICATION

REACTIONS (9)
  - Wrong technique in product usage process [Unknown]
  - Drug dose omission [Unknown]
  - Vitreous detachment [Unknown]
  - Visual impairment [Recovered/Resolved]
  - Arteriosclerotic retinopathy [Unknown]
  - Retinal ischaemia [Unknown]
  - Iridocyclitis [Recovered/Resolved]
  - Endophthalmitis [Recovering/Resolving]
  - Macular oedema [Recovered/Resolved]
